FAERS Safety Report 20189384 (Version 4)
Quarter: 2023Q2

REPORT INFORMATION
  Report Type: Spontaneous
  Country: US (occurrence: US)
  Receive Date: 20211215
  Receipt Date: 20230608
  Transmission Date: 20230721
  Serious: Yes (Other)
  Sender: FDA-Public Use
  Company Number: US-PFIZER INC-202101597581

PATIENT
  Age: 49 Year
  Sex: Female

DRUGS (5)
  1. INLYTA [Suspect]
     Active Substance: AXITINIB
     Indication: Angiosarcoma metastatic
     Dosage: 5 MG, 2XDAY
     Dates: start: 201707
  2. INLYTA [Suspect]
     Active Substance: AXITINIB
     Dosage: 4 MG, 2XDAY
     Dates: start: 20170927
  3. INLYTA [Suspect]
     Active Substance: AXITINIB
     Dosage: 2 MG, 2X/DAY
     Route: 048
     Dates: start: 20171012
  4. INLYTA [Suspect]
     Active Substance: AXITINIB
     Dosage: 1 MG
  5. INLYTA [Suspect]
     Active Substance: AXITINIB
     Dosage: 2 MG, 2X/DAY (EVERY 12 HOURS)
     Route: 048

REACTIONS (6)
  - Oesophageal dilatation [Unknown]
  - Abdominal distension [Unknown]
  - Diarrhoea [Unknown]
  - Fatigue [Unknown]
  - Hypertension [Recovered/Resolved]
  - Off label use [Unknown]

NARRATIVE: CASE EVENT DATE: 20170101
